FAERS Safety Report 10872330 (Version 3)
Quarter: 2016Q2

REPORT INFORMATION
  Report Type: Report from Study
  Country: US (occurrence: US)
  Receive Date: 20150226
  Receipt Date: 20160428
  Transmission Date: 20160815
  Serious: Yes (Hospitalization, Other)
  Sender: FDA-Public Use
  Company Number: US-AMGEN-USASP2015012910

PATIENT
  Age: 61 Year
  Sex: Male
  Weight: 97.41 kg

DRUGS (5)
  1. DEXAMETHASONE. [Concomitant]
     Active Substance: DEXAMETHASONE
     Indication: PLASMA CELL MYELOMA
     Dosage: 20 MG, PER CHEMO REGIM (100 MG VIAL), DAYS 1,8,15 OF 28 DAY CYCLE
     Route: 042
     Dates: start: 20140903, end: 20160211
  2. DECADRON [Concomitant]
     Active Substance: DEXAMETHASONE
     Indication: PLASMA CELL MYELOMA
     Dosage: 40 MG, PER CHEMO REGIM, DAY 22
     Route: 048
     Dates: start: 20140930
  3. KYPROLIS [Suspect]
     Active Substance: CARFILZOMIB
     Dosage: 54 MG, TWO DAYS WEEKLY
     Route: 042
     Dates: start: 20160113, end: 20160211
  4. KYPROLIS [Suspect]
     Active Substance: CARFILZOMIB
     Indication: PLASMA CELL MYELOMA
     Dosage: 40 MG, 2 DAYS WEEKLY
     Route: 042
     Dates: start: 20140903, end: 20160107
  5. CYTOXAN [Concomitant]
     Active Substance: CYCLOPHOSPHAMIDE
     Indication: PLASMA CELL MYELOMA
     Dosage: 600 MG, DAYS 1,8,15 OF 28 DAY CYCLE
     Route: 048
     Dates: start: 20140903, end: 20160211

REACTIONS (3)
  - Renal injury [Recovered/Resolved]
  - Second primary malignancy [Not Recovered/Not Resolved]
  - Upper respiratory tract infection [Not Recovered/Not Resolved]

NARRATIVE: CASE EVENT DATE: 20141113
